FAERS Safety Report 5854319-8 (Version None)
Quarter: 2008Q3

REPORT INFORMATION
  Report Type: 
  Country: None (occurrence: None)
  Receive Date: 20080822
  Receipt Date: 20080812
  Transmission Date: 20090109
  Serious: Yes (Hospitalization, Disabling, Other)
  Sender: FDA-Public Use
  Company Number: US-PFIZER INC-2008009662

PATIENT
  Sex: Male
  Weight: 120.2 kg

DRUGS (5)
  1. VIAGRA [Suspect]
     Indication: BACK PAIN
     Dates: start: 20050101, end: 20080301
  2. VIAGRA [Suspect]
     Indication: ARTHRALGIA
  3. VIAGRA [Suspect]
     Indication: ERECTILE DYSFUNCTION
  4. TUMS [Concomitant]
  5. ALL OTHER THERAPEUTIC PRODUCTS [Concomitant]

REACTIONS (13)
  - CHEST DISCOMFORT [None]
  - CHEST PAIN [None]
  - DEAFNESS [None]
  - DIABETES MELLITUS [None]
  - DIZZINESS [None]
  - HEADACHE [None]
  - LOSS OF CONSCIOUSNESS [None]
  - MOTION SICKNESS [None]
  - MUSCULOSKELETAL PAIN [None]
  - NASAL CONGESTION [None]
  - PAIN [None]
  - RHINORRHOEA [None]
  - VISION BLURRED [None]
